FAERS Safety Report 7723935-0 (Version None)
Quarter: 2011Q3

REPORT INFORMATION
  Report Type: 
  Country: None (occurrence: None)
  Receive Date: 20110901
  Receipt Date: 20110818
  Transmission Date: 20111222
  Serious: Yes (Hospitalization)
  Sender: FDA-Public Use
  Company Number: US-ELI_LILLY_AND_COMPANY-US201108006809

PATIENT
  Sex: Female

DRUGS (1)
  1. FORTEO [Suspect]
     Dosage: UNK, UNKNOWN
     Dates: start: 20110630, end: 20110701

REACTIONS (4)
  - RHEUMATOID ARTHRITIS [None]
  - CARDIAC DISORDER [None]
  - HOSPITALISATION [None]
  - FIBROMYALGIA [None]
